FAERS Safety Report 24302159 (Version 1)
Quarter: 2024Q3

REPORT INFORMATION
  Report Type: Spontaneous
  Country: CN (occurrence: CN)
  Receive Date: 20240910
  Receipt Date: 20240910
  Transmission Date: 20241017
  Serious: Yes (Hospitalization)
  Sender: BAXTER
  Company Number: None

PATIENT
  Age: 62 Year
  Sex: Male
  Weight: 51.5 kg

DRUGS (4)
  1. CYCLOPHOSPHAMIDE [Suspect]
     Active Substance: CYCLOPHOSPHAMIDE
     Indication: Breast cancer male
     Dosage: 0.5 G, ONE TIME IN ONE DAY, DILUTED WITH 60ML 0.9% SODIUM CHLORIDE, START TIME: 10:30
     Route: 013
     Dates: start: 20240814, end: 20240814
  2. SODIUM CHLORIDE [Suspect]
     Active Substance: SODIUM CHLORIDE
     Indication: Medication dilution
     Dosage: 0.9% 60 ML, ONE TIME IN ONE DAY, USED TO DILUTE 0.5G CYCLOPHOSPHAMIDE, START TIME: 10:30
     Route: 013
     Dates: start: 20240814, end: 20240814
  3. SODIUM CHLORIDE [Suspect]
     Active Substance: SODIUM CHLORIDE
     Dosage: 0.9% 60 ML, ONE TIME IN ONE DAY, USED TO DILUTE 80MG EPIRUBICIN HYDROCHLORIDE, START TIME: 10:30
     Route: 013
     Dates: start: 20240814, end: 20240814
  4. EPIRUBICIN HYDROCHLORIDE [Suspect]
     Active Substance: EPIRUBICIN HYDROCHLORIDE
     Indication: Breast cancer male
     Dosage: 80 MG, ONE TIME IN ONE DAY, DILUTED WITH 60ML 0.9% SODIUM CHLORIDE, START TIME: 10:30
     Route: 013
     Dates: start: 20240814, end: 20240814

REACTIONS (1)
  - White blood cell count decreased [Recovered/Resolved]

NARRATIVE: CASE EVENT DATE: 20240819
